FAERS Safety Report 9880805 (Version 1)
Quarter: 2014Q1

REPORT INFORMATION
  Report Type: Spontaneous
  Country: US (occurrence: US)
  Receive Date: 20140207
  Receipt Date: 20140207
  Transmission Date: 20141002
  Serious: No
  Sender: FDA-Public Use
  Company Number: US-PFIZER INC-2014032142

PATIENT
  Sex: Male

DRUGS (2)
  1. TIKOSYN [Suspect]
     Dosage: 250 UG, UNK
     Dates: start: 2014
  2. TIKOSYN [Suspect]
     Dosage: 500 UG, UNK
     Dates: start: 2014

REACTIONS (1)
  - Drug ineffective [Unknown]
